FAERS Safety Report 16808752 (Version 1)
Quarter: 2019Q3

REPORT INFORMATION
  Report Type: Spontaneous
  Country: US (occurrence: US)
  Receive Date: 20190916
  Receipt Date: 20190916
  Transmission Date: 20191005
  Serious: No
  Sender: FDA-Public Use
  Company Number: US-AUROBINDO-AUR-APL-2019-026951

PATIENT

DRUGS (3)
  1. PAROXETINE TABLETS USP 10MG [Suspect]
     Active Substance: PAROXETINE
     Indication: ANXIETY
     Dosage: 10 MILLIGRAM, ONCE A DAY
     Route: 065
     Dates: start: 20190301, end: 20190302
  2. PAROXETINE TABLETS USP 10MG [Suspect]
     Active Substance: PAROXETINE
     Dosage: 10 MILLIGRAM, ONCE A DAY
     Route: 065
     Dates: start: 20190429, end: 20190430
  3. ZYRTEC [Concomitant]
     Active Substance: CETIRIZINE HYDROCHLORIDE
     Indication: PRODUCT USED FOR UNKNOWN INDICATION
     Dosage: UNK
     Route: 065

REACTIONS (5)
  - Psychomotor hyperactivity [Unknown]
  - Mood swings [Unknown]
  - Product substitution [Unknown]
  - Anger [Unknown]
  - Logorrhoea [Unknown]
